FAERS Safety Report 19793051 (Version 1)
Quarter: 2021Q3

REPORT INFORMATION
  Report Type: Spontaneous
  Country: FR (occurrence: FR)
  Receive Date: 20210906
  Receipt Date: 20210906
  Transmission Date: 20211014
  Serious: Yes (Death, Other)
  Sender: FDA-Public Use
  Company Number: FR-PFIZER INC-202101113915

PATIENT
  Age: 26 Year
  Sex: Male

DRUGS (4)
  1. COCAINE [Suspect]
     Active Substance: COCAINE
     Dosage: UNK
  2. VENLAFAXINE HCL [Suspect]
     Active Substance: VENLAFAXINE HYDROCHLORIDE
     Dosage: UNK
  3. METHADONE [Suspect]
     Active Substance: METHADONE HYDROCHLORIDE
     Dosage: UNK
  4. ALCOOL [Suspect]
     Active Substance: ALCOHOL
     Dosage: UNK

REACTIONS (1)
  - Death [Fatal]
